FAERS Safety Report 6647710-3 (Version None)
Quarter: 2010Q1

REPORT INFORMATION
  Report Type: 
  Country: None (occurrence: None)
  Receive Date: 20100323
  Receipt Date: 20100323
  Transmission Date: 20100710
  Serious: Yes (Life-Threatening, Hospitalization)
  Sender: FDA-Public Use
  Company Number: None

PATIENT
  Sex: Female
  Weight: 55.7924 kg

DRUGS (1)
  1. EQUATE NASAL SPRAY OXYMETAZOLINE HYDROCHLORIDE 0.05% [Suspect]
     Indication: UPPER RESPIRATORY TRACT INFECTION
     Dosage: ONE SPRAY EACH NOSTRIL Q.D. NASAL
     Route: 045
     Dates: start: 20100309

REACTIONS (4)
  - DYSPNOEA [None]
  - MYOCLONUS [None]
  - NAUSEA [None]
  - VOMITING [None]
